FAERS Safety Report 8068989-X (Version None)
Quarter: 2011Q4

REPORT INFORMATION
  Report Type: 
  Country: None (occurrence: None)
  Receive Date: 20111221
  Receipt Date: 20110201
  Transmission Date: 20120403
  Serious: Yes (Other)
  Sender: FDA-Public Use
  Company Number: PHHY2010US77751

PATIENT
  Age: 6 Year
  Sex: Female
  Weight: 18 kg

DRUGS (3)
  1. ASPIRIN [Concomitant]
  2. VYNASE [Concomitant]
  3. EXJADE [Suspect]
     Indication: SICKLE CELL ANAEMIA
     Dosage: 375  MG, QD, ORAL
     Route: 048
     Dates: start: 20100713, end: 20100819

REACTIONS (3)
  - ALANINE AMINOTRANSFERASE INCREASED [None]
  - SERUM FERRITIN INCREASED [None]
  - ASPARTATE AMINOTRANSFERASE INCREASED [None]
